FAERS Safety Report 11823611 (Version 2)
Quarter: 2016Q1

REPORT INFORMATION
  Report Type: Spontaneous
  Country: US (occurrence: US)
  Receive Date: 20151210
  Receipt Date: 20160105
  Transmission Date: 20160525
  Serious: No
  Sender: FDA-Public Use
  Company Number: US-PFIZER INC-2015429401

PATIENT
  Age: 61 Year
  Sex: Male
  Weight: 95.25 kg

DRUGS (4)
  1. ADVIL [Suspect]
     Active Substance: IBUPROFEN
     Indication: PAIN
     Dosage: 200 MG BEFORE GO TO BED
  2. ADVIL [Suspect]
     Active Substance: IBUPROFEN
     Indication: FATIGUE
     Dosage: SOMETIME TAKES 2 (400MG), BEFORE GO TO BED
  3. ADVIL [Suspect]
     Active Substance: IBUPROFEN
     Indication: SLEEP DISORDER
  4. ADVIL [Suspect]
     Active Substance: IBUPROFEN
     Indication: MYALGIA
     Dosage: 400 MG, UNK, (2 TABLETS)
     Route: 048
     Dates: start: 201511, end: 201511

REACTIONS (4)
  - Blood pressure increased [Recovered/Resolved]
  - Product use issue [Unknown]
  - Sleep disorder due to a general medical condition [Recovered/Resolved]
  - Headache [Recovered/Resolved]
